FAERS Safety Report 8586657-2 (Version None)
Quarter: 2012Q3

REPORT INFORMATION
  Report Type: 
  Country: None (occurrence: None)
  Receive Date: 20120810
  Receipt Date: 20120806
  Transmission Date: 20120928
  Serious: No
  Sender: FDA-Public Use
  Company Number: PR-BAYER-2012-081213

PATIENT
  Age: 71 Year
  Sex: Male
  Weight: 119.27 kg

DRUGS (7)
  1. ASPIRIN [Concomitant]
  2. CELCEC [Concomitant]
  3. ULTRAVIST 150 [Suspect]
     Indication: COMPUTERISED TOMOGRAM
     Dosage: 100CC
     Route: 042
     Dates: start: 20120802
  4. PROGRAF [Concomitant]
  5. GLIPIZIDE [Concomitant]
  6. FLOMAX [Concomitant]
  7. METOPROLOL TARTRATE [Concomitant]

REACTIONS (1)
  - ADVERSE EVENT [None]
